FAERS Safety Report 10063564 (Version 1)
Quarter: 2014Q2

REPORT INFORMATION
  Report Type: Spontaneous
  Country: US (occurrence: None)
  Receive Date: 20140402
  Receipt Date: 20140402
  Transmission Date: 20141212
  Serious: Yes (Other)
  Sender: FDA-Public Use
  Company Number: DSC201401-000001

PATIENT
  Age: 1 Day
  Sex: Female
  Weight: 2.39 kg

DRUGS (3)
  1. SURFAXIN [Suspect]
     Indication: NEONATAL RESPIRATORY DISTRESS SYNDROME
     Dosage: 1 ALIQUOT
     Dates: start: 20140113, end: 20140113
  2. AMPICILLIN (AMPICILLIN) [Concomitant]
  3. GENTAMICIN (GENTAMICIN) [Concomitant]

REACTIONS (1)
  - Acute respiratory failure [None]
